FAERS Safety Report 9186277 (Version 2)
Quarter: 2013Q2

REPORT INFORMATION
  Report Type: Spontaneous
  Country: NL (occurrence: NL)
  Receive Date: 20130325
  Receipt Date: 20130410
  Transmission Date: 20140414
  Serious: Yes (Death)
  Sender: FDA-Public Use
  Company Number: PHHY2013NL028493

PATIENT
  Age: 71 Year
  Sex: Male

DRUGS (5)
  1. ZOMETA [Suspect]
     Indication: METASTASIS
     Dosage: 4 MG, ONCE PER 4 WEEKS
     Route: 042
     Dates: start: 20130214
  2. ZOMETA [Suspect]
     Dosage: 4 MG/100 ML,ONCE PER 28 DAYS
     Route: 042
     Dates: start: 20130221
  3. DUROGESIC [Concomitant]
     Dosage: 100, 1X PER 3 DAYS
  4. ABSTRAL [Concomitant]
     Dosage: UNK
  5. PARACETAMOL [Concomitant]
     Dosage: 1000MG 4DD1

REACTIONS (1)
  - Death [Fatal]
